FAERS Safety Report 7525659-1 (Version None)
Quarter: 2011Q2

REPORT INFORMATION
  Report Type: 
  Country: None (occurrence: None)
  Receive Date: 20110606
  Receipt Date: 20110524
  Transmission Date: 20111010
  Serious: Yes (Hospitalization)
  Sender: FDA-Public Use
  Company Number: PHHY2011NL45096

PATIENT
  Sex: Male

DRUGS (1)
  1. DIOVAN [Suspect]
     Dosage: 01 DF, PER DAY (IN THE MORNING)
     Dates: start: 20090721, end: 20110516

REACTIONS (1)
  - ANAPHYLACTIC REACTION [None]
